FAERS Safety Report 17080275 (Version 1)
Quarter: 2019Q4

REPORT INFORMATION
  Report Type: Report from Study
  Country: None (occurrence: CA)
  Receive Date: 20191127
  Receipt Date: 20191127
  Transmission Date: 20200122
  Serious: Yes (Hospitalization)
  Sender: FDA-Public Use
  Company Number: CA-ABBVIE-19K-028-3170153-00

PATIENT
  Age: 46 Year
  Sex: Female

DRUGS (2)
  1. DAPSON [Suspect]
     Active Substance: DAPSONE
     Indication: PRODUCT USED FOR UNKNOWN INDICATION
     Route: 048
     Dates: end: 2019
  2. HUMIRA [Suspect]
     Active Substance: ADALIMUMAB
     Indication: HIDRADENITIS
     Route: 058
     Dates: start: 20181120

REACTIONS (9)
  - Cough [Unknown]
  - Asthenia [Not Recovered/Not Resolved]
  - Blood methaemoglobin [Unknown]
  - Chest discomfort [Unknown]
  - Respiratory disorder [Unknown]
  - Feeling cold [Unknown]
  - Throat irritation [Unknown]
  - Oropharyngeal pain [Unknown]
  - Decreased activity [Not Recovered/Not Resolved]

NARRATIVE: CASE EVENT DATE: 201910
